FAERS Safety Report 14544017 (Version 1)
Quarter: 2018Q1

REPORT INFORMATION
  Report Type: Spontaneous
  Country: AR (occurrence: AR)
  Receive Date: 20180216
  Receipt Date: 20180216
  Transmission Date: 20180509
  Serious: Yes (Death, Other)
  Sender: FDA-Public Use
  Company Number: AR-PFIZER INC-2018068374

PATIENT
  Age: 81 Year
  Sex: Female

DRUGS (1)
  1. XELJANZ [Suspect]
     Active Substance: TOFACITINIB CITRATE
     Indication: RHEUMATOID ARTHRITIS
     Dosage: 5 MG, 2X/DAY
     Dates: start: 20140712

REACTIONS (9)
  - Death [Fatal]
  - Localised infection [Unknown]
  - Pain in extremity [Unknown]
  - Oedema peripheral [Unknown]
  - Peripheral swelling [Unknown]
  - Cardiopulmonary failure [Unknown]
  - Eating disorder [Unknown]
  - Tumour marker abnormal [Unknown]
  - Ulcer [Unknown]

NARRATIVE: CASE EVENT DATE: 20180102
